FAERS Safety Report 6163801-8 (Version None)
Quarter: 2009Q2

REPORT INFORMATION
  Report Type: 
  Country: None (occurrence: None)
  Receive Date: 20090422
  Receipt Date: 20090407
  Transmission Date: 20091009
  Serious: Yes (Other)
  Sender: FDA-Public Use
  Company Number: TW-GENENTECH-278554

PATIENT
  Age: 54 Year
  Sex: Female

DRUGS (3)
  1. ERLOTINIB [Suspect]
     Indication: LUNG ADENOCARCINOMA
     Dosage: 150 MG, QD
     Route: 048
     Dates: start: 20080604
  2. ERLOTINIB [Suspect]
     Dosage: 150 MG, UNK
     Route: 048
     Dates: start: 20090101
  3. AVASTIN [Concomitant]
     Indication: DRUG USE FOR UNKNOWN INDICATION
     Dosage: UNK
     Dates: start: 20080306

REACTIONS (2)
  - RASH [None]
  - SKIN DISORDER [None]
